FAERS Safety Report 8092170-1 (Version None)
Quarter: 2012Q1

REPORT INFORMATION
  Report Type: 
  Country: None (occurrence: None)
  Receive Date: 20120129
  Receipt Date: 20111115
  Transmission Date: 20120608
  Serious: No
  Sender: FDA-Public Use
  Company Number: US-ABBOTT-11P-163-0874319-00

PATIENT
  Age: 42 Year
  Sex: Male

DRUGS (1)
  1. HUMIRA [Suspect]
     Indication: PSORIASIS
     Dates: start: 20111027

REACTIONS (5)
  - THROAT IRRITATION [None]
  - MALAISE [None]
  - UPPER RESPIRATORY TRACT CONGESTION [None]
  - LUNG DISORDER [None]
  - COUGH [None]
